FAERS Safety Report 5157772-0 (Version None)
Quarter: 2006Q4

REPORT INFORMATION
  Report Type: 
  Country: None (occurrence: None)
  Receive Date: 20061127
  Receipt Date: 20051012
  Transmission Date: 20070319
  Serious: Yes (Hospitalization)
  Sender: FDA-Public Use
  Company Number: US-ROCHE-421205

PATIENT
  Age: 45 Year
  Sex: Female
  Weight: 58.5 kg

DRUGS (7)
  1. PEGASYS [Suspect]
     Indication: HEPATITIS C
     Route: 058
     Dates: start: 20040907, end: 20050424
  2. RIBAVIRIN [Suspect]
     Indication: HEPATITIS C
     Route: 065
     Dates: start: 20040907, end: 20041115
  3. LEXAPRO [Concomitant]
     Route: 048
  4. METHADONE HCL [Concomitant]
     Route: 048
  5. NEXIUM [Concomitant]
     Route: 048
  6. SYNTHROID [Concomitant]
     Route: 048
  7. PHENERGAN [Concomitant]
     Dosage: REPORTED AS ONE EVERY SIX HOURS WHEN NEEDED.
     Route: 048

REACTIONS (3)
  - ERYTHEMA MULTIFORME [None]
  - HAEMOLYTIC ANAEMIA [None]
  - PYREXIA [None]
